FAERS Safety Report 24746259 (Version 1)
Quarter: 2024Q4

REPORT INFORMATION
  Report Type: Spontaneous
  Country: US (occurrence: US)
  Receive Date: 20241218
  Receipt Date: 20241218
  Transmission Date: 20250115
  Serious: No
  Sender: ALK-ABELLO
  Company Number: US-ALK-ABELLO A/S-2024AA004478

PATIENT

DRUGS (8)
  1. JUGLANS REGIA POLLEN [Suspect]
     Active Substance: JUGLANS REGIA POLLEN
     Indication: Skin test
     Dosage: UNK
     Dates: start: 20241016
  2. ALLERGENIC EXTRACT- PEANUT ARACHIS HYPOGAEA [Suspect]
     Active Substance: ALLERGENIC EXTRACT- PEANUT ARACHIS HYPOGAEA
     Indication: Skin test
     Dosage: UNK
     Dates: start: 20241016
  3. AZITHROMYCIN [Concomitant]
     Active Substance: AZITHROMYCIN
     Indication: Product used for unknown indication
     Dosage: 2.5 MILLILITER
     Route: 048
  4. CEFDINIR [Concomitant]
     Active Substance: CEFDINIR
     Indication: Product used for unknown indication
     Dosage: 2.7 MILLIGRAM
     Route: 048
     Dates: start: 20240624
  5. BUDESONIDE [Concomitant]
     Active Substance: BUDESONIDE
     Indication: Product used for unknown indication
     Dosage: 0.5 MG/2 ML SUSPENSION FOR NEBULIZATION
  6. ALBUTEROL SULFATE [Concomitant]
     Active Substance: ALBUTEROL SULFATE
     Indication: Product used for unknown indication
     Dosage: 2.5 MG/3 ML (0.083 %) SOLUTION FOR NEBULIZATION
  7. PROAIR HFA [Concomitant]
     Active Substance: ALBUTEROL SULFATE
     Indication: Product used for unknown indication
     Dosage: 90 MCG/ACTUATION AEROSOL INHALER: 2 PUFFS NOW
  8. AUVI-Q [Concomitant]
     Active Substance: EPINEPHRINE

REACTIONS (1)
  - False negative investigation result [Unknown]
